FAERS Safety Report 16338263 (Version 1)
Quarter: 2019Q2

REPORT INFORMATION
  Report Type: Spontaneous
  Country: JP (occurrence: JP)
  Receive Date: 20190521
  Receipt Date: 20190521
  Transmission Date: 20190711
  Serious: Yes (Hospitalization, Other)
  Sender: FDA-Public Use
  Company Number: JP-JNJFOC-20190523943

PATIENT
  Age: 86 Year
  Sex: Female
  Weight: 43 kg

DRUGS (4)
  1. MEMARY [Suspect]
     Active Substance: MEMANTINE HYDROCHLORIDE
     Indication: DEMENTIA
     Route: 048
  2. RISPERDAL [Suspect]
     Active Substance: RISPERIDONE
     Indication: ANXIETY
     Route: 048
  3. REMINYL [Suspect]
     Active Substance: GALANTAMINE
     Indication: DEMENTIA
     Route: 048
  4. TIAPRIDE [Suspect]
     Active Substance: TIAPRIDE
     Indication: CEREBRAL INFARCTION
     Route: 048
     Dates: start: 20181022, end: 20181113

REACTIONS (4)
  - Hospitalisation [Unknown]
  - Cerebral infarction [Unknown]
  - Arthralgia [Unknown]
  - Blood creatine phosphokinase increased [Recovered/Resolved]

NARRATIVE: CASE EVENT DATE: 20181113
